FAERS Safety Report 20380515 (Version 1)
Quarter: 2022Q1

REPORT INFORMATION
  Report Type: Spontaneous
  Country: FR (occurrence: FR)
  Receive Date: 20220127
  Receipt Date: 20220127
  Transmission Date: 20220423
  Serious: Yes (Hospitalization)
  Sender: FDA-Public Use
  Company Number: FR-AFSSAPS-TS20216431

PATIENT
  Age: 81 Year
  Sex: Male
  Weight: 71 kg

DRUGS (1)
  1. ATORVASTATIN [Suspect]
     Active Substance: ATORVASTATIN
     Indication: Dyslipidaemia
     Dosage: UNK, UNTIL 22-OCT-2021
     Route: 048

REACTIONS (1)
  - Autoimmune myositis [Recovering/Resolving]

NARRATIVE: CASE EVENT DATE: 20211101
